FAERS Safety Report 7365140-6 (Version None)
Quarter: 2011Q1

REPORT INFORMATION
  Report Type: 
  Country: None (occurrence: None)
  Receive Date: 20110321
  Receipt Date: 20110309
  Transmission Date: 20110831
  Serious: Yes (Congenital Anomaly)
  Sender: FDA-Public Use
  Company Number: US-GILEAD-2011-0037351

PATIENT
  Age: 27 Year
  Sex: Female

DRUGS (3)
  1. TRUVADA [Suspect]
     Indication: HIV INFECTION
     Route: 048
     Dates: start: 20100608
  2. NORVIR [Concomitant]
     Indication: HIV INFECTION
     Route: 048
     Dates: start: 20100608
  3. REYATAZ [Concomitant]
     Indication: HIV INFECTION
     Dates: start: 20100608

REACTIONS (2)
  - PREGNANCY [None]
  - ULTRASOUND SCAN ABNORMAL [None]
